FAERS Safety Report 5689239-5 (Version None)
Quarter: 2008Q1

REPORT INFORMATION
  Report Type: 
  Country: None (occurrence: None)
  Receive Date: 20080331
  Receipt Date: 20080227
  Transmission Date: 20080703
  Serious: Yes (Hospitalization)
  Sender: FDA-Public Use
  Company Number: JP-PURDUE-MAG_2008_0000661

PATIENT
  Age: 76 Year
  Sex: Female

DRUGS (1)
  1. THEOPHYLLINE [Suspect]
     Indication: ASTHMA
     Route: 048

REACTIONS (2)
  - DEPRESSION SUICIDAL [None]
  - THERAPEUTIC AGENT TOXICITY [None]
